FAERS Safety Report 9266522 (Version 2)
Quarter: 2013Q3

REPORT INFORMATION
  Report Type: Spontaneous
  Country: GB (occurrence: GB)
  Receive Date: 20130502
  Receipt Date: 20130725
  Transmission Date: 20140515
  Serious: Yes (Hospitalization)
  Sender: FDA-Public Use
  Company Number: GB-MPIJNJ-2013-02649

PATIENT
  Sex: 0

DRUGS (3)
  1. VELCADE [Suspect]
     Indication: PLASMA CELL MYELOMA
     Dosage: UNK
     Route: 065
     Dates: end: 20130325
  2. CORTICOSTEROID NOS [Concomitant]
  3. ANTIBIOTICS [Concomitant]

REACTIONS (4)
  - Gastrointestinal necrosis [Unknown]
  - Blood glucose increased [Unknown]
  - Fatigue [Unknown]
  - Dehydration [Unknown]
